FAERS Safety Report 21511969 (Version 1)
Quarter: 2022Q4

REPORT INFORMATION
  Report Type: Spontaneous
  Country: US (occurrence: US)
  Receive Date: 20221027
  Receipt Date: 20221027
  Transmission Date: 20230112
  Serious: Yes (Hospitalization, Other)
  Sender: FDA-Public Use
  Company Number: MIQ-10142022-1536

PATIENT
  Sex: Male

DRUGS (1)
  1. MIGLUSTAT [Suspect]
     Active Substance: MIGLUSTAT
     Indication: Product used for unknown indication
     Dosage: 2 CAPSULES OF 100 MG, TID
     Route: 048
     Dates: start: 2022

REACTIONS (1)
  - Seizure cluster [Unknown]

NARRATIVE: CASE EVENT DATE: 20220101
